FAERS Safety Report 8312694-9 (Version None)
Quarter: 2012Q2

REPORT INFORMATION
  Report Type: 
  Country: None (occurrence: None)
  Receive Date: 20120426
  Receipt Date: 20120423
  Transmission Date: 20120825
  Serious: Yes (Hospitalization)
  Sender: FDA-Public Use
  Company Number: BR-BIOGENIDEC-2012BI011632

PATIENT
  Age: 21 Year
  Sex: Female

DRUGS (4)
  1. FRISIUM [Concomitant]
     Indication: CONVULSION
  2. TYSABRI [Suspect]
     Indication: MULTIPLE SCLEROSIS
     Route: 042
     Dates: start: 20101001
  3. TEGRETOL [Concomitant]
     Indication: CONVULSION
  4. TOPIRAMATE [Concomitant]
     Indication: CONVULSION

REACTIONS (2)
  - MULTIPLE SCLEROSIS RELAPSE [None]
  - MENTAL DISORDER [None]
